FAERS Safety Report 10353125 (Version 2)
Quarter: 2014Q4

REPORT INFORMATION
  Report Type: Spontaneous
  Country: US (occurrence: US)
  Receive Date: 20140730
  Receipt Date: 20141113
  Transmission Date: 20150528
  Serious: Yes (Hospitalization)
  Sender: FDA-Public Use
  Company Number: US-B.I. PHARMACEUTICALS,INC./RIDGEFIELD-2014-BI-34622BP

PATIENT
  Age: 43 Year
  Sex: Male
  Weight: 87.1 kg

DRUGS (7)
  1. COUMADIN [Suspect]
     Active Substance: WARFARIN SODIUM
     Indication: DEEP VEIN THROMBOSIS
  2. PRADAXA [Suspect]
     Active Substance: DABIGATRAN ETEXILATE MESYLATE
     Indication: DEEP VEIN THROMBOSIS
  3. COUMADIN [Suspect]
     Active Substance: WARFARIN SODIUM
     Indication: FACTOR V DEFICIENCY
     Route: 065
     Dates: start: 201201
  4. ACETAMINOPHEN. [Concomitant]
     Active Substance: ACETAMINOPHEN
     Indication: PRODUCT USED FOR UNKNOWN INDICATION
     Route: 065
  5. PRADAXA [Suspect]
     Active Substance: DABIGATRAN ETEXILATE MESYLATE
     Indication: FACTOR V DEFICIENCY
     Dosage: 300 MG
     Route: 048
     Dates: start: 20120103, end: 20120111
  6. LOVENOX [Concomitant]
     Active Substance: ENOXAPARIN SODIUM
     Indication: PRODUCT USED FOR UNKNOWN INDICATION
     Dosage: 300 MG
     Route: 058
  7. LISINOPRIL. [Concomitant]
     Active Substance: LISINOPRIL
     Indication: PRODUCT USED FOR UNKNOWN INDICATION
     Route: 065

REACTIONS (9)
  - Haemorrhagic anaemia [Unknown]
  - Abdominal wall haematoma [Unknown]
  - Muscle haemorrhage [Unknown]
  - Coagulopathy [Unknown]
  - Haemoptysis [Unknown]
  - Gastrointestinal haemorrhage [Recovered/Resolved]
  - Ecchymosis [Unknown]
  - Loss of consciousness [Unknown]
  - Haemoptysis [Recovered/Resolved]

NARRATIVE: CASE EVENT DATE: 201201
